FAERS Safety Report 15258973 (Version 1)
Quarter: 2018Q3

REPORT INFORMATION
  Report Type: Spontaneous
  Country: US (occurrence: US)
  Receive Date: 20180809
  Receipt Date: 20180809
  Transmission Date: 20181010
  Serious: No
  Sender: FDA-Public Use
  Company Number: US-BAYER-2018-144909

PATIENT
  Age: 3 Year
  Sex: Male

DRUGS (1)
  1. CLARITIN [Suspect]
     Active Substance: LORATADINE
     Dosage: AT MOST 8 TABLETS
     Route: 048
     Dates: start: 20180730, end: 20180731

REACTIONS (2)
  - Failure of child resistant mechanism for pharmaceutical product [None]
  - Accidental exposure to product by child [None]

NARRATIVE: CASE EVENT DATE: 20180731
